FAERS Safety Report 6421049-3 (Version None)
Quarter: 2009Q4

REPORT INFORMATION
  Report Type: 
  Country: None (occurrence: None)
  Receive Date: 20091030
  Receipt Date: 20091023
  Transmission Date: 20100525
  Serious: Yes (Other)
  Sender: FDA-Public Use
  Company Number: ES-CUBIST-2009S1000473

PATIENT
  Age: 60 Year
  Sex: Male
  Weight: 80 kg

DRUGS (2)
  1. CUBICIN [Suspect]
     Indication: DRUG USE FOR UNKNOWN INDICATION
     Route: 042
     Dates: start: 20090326, end: 20090412
  2. CUBICIN [Suspect]
     Route: 042
     Dates: start: 20090326, end: 20090412

REACTIONS (1)
  - LEUKOCYTOCLASTIC VASCULITIS [None]
